FAERS Safety Report 14179933 (Version 1)
Quarter: 2017Q4

REPORT INFORMATION
  Report Type: Spontaneous
  Country: JP (occurrence: JP)
  Receive Date: 20171110
  Receipt Date: 20171110
  Transmission Date: 20180321
  Serious: Yes (Hospitalization)
  Sender: FDA-Public Use
  Company Number: JP-EDENBRIDGE PHARMACEUTICALS, LLC-JP-2017EDE000191

PATIENT
  Age: 80 Year
  Sex: Male

DRUGS (4)
  1. PREDNISOLONE SODIUM PHOSPHATE. [Suspect]
     Active Substance: PREDNISOLONE SODIUM PHOSPHATE
     Dosage: 20 MG, QD
     Route: 048
  2. PREDNISOLONE SODIUM PHOSPHATE. [Suspect]
     Active Substance: PREDNISOLONE SODIUM PHOSPHATE
     Dosage: 60 MG, QD
     Route: 042
  3. AZATHIOPRINE. [Suspect]
     Active Substance: AZATHIOPRINE
     Indication: COLITIS ULCERATIVE
     Dosage: UNK
  4. PREDNISOLONE SODIUM PHOSPHATE. [Suspect]
     Active Substance: PREDNISOLONE SODIUM PHOSPHATE
     Indication: COLITIS ULCERATIVE
     Dosage: 30 MG, QD
     Route: 048

REACTIONS (2)
  - Meningitis bacterial [Recovering/Resolving]
  - Sepsis [Recovering/Resolving]
